FAERS Safety Report 6176355-7 (Version None)
Quarter: 2009Q2

REPORT INFORMATION
  Report Type: 
  Country: None (occurrence: None)
  Receive Date: 20090501
  Receipt Date: 20090421
  Transmission Date: 20091009
  Serious: Yes (Hospitalization)
  Sender: FDA-Public Use
  Company Number: US-BIOGENIDEC-2009BI012472

PATIENT
  Age: 56 Year
  Sex: Female
  Weight: 61 kg

DRUGS (1)
  1. AVONEX [Suspect]
     Indication: MULTIPLE SCLEROSIS
     Route: 030
     Dates: start: 20031001

REACTIONS (9)
  - ABASIA [None]
  - APHASIA [None]
  - BLOOD SODIUM DECREASED [None]
  - COGNITIVE DISORDER [None]
  - COMA [None]
  - CONVULSION [None]
  - DYSGRAPHIA [None]
  - HYPOAESTHESIA [None]
  - LIMB OPERATION [None]
